FAERS Safety Report 13093489 (Version 1)
Quarter: 2017Q1

REPORT INFORMATION
  Report Type: Spontaneous
  Country: GB (occurrence: GB)
  Receive Date: 20170106
  Receipt Date: 20170106
  Transmission Date: 20170428
  Serious: Yes (Other)
  Sender: FDA-Public Use
  Company Number: GB-TEVA-726721ACC

PATIENT
  Sex: Female

DRUGS (3)
  1. ASPIRIN. [Concomitant]
     Active Substance: ASPIRIN
     Indication: PRODUCT USED FOR UNKNOWN INDICATION
     Route: 065
  2. GTN [Concomitant]
     Active Substance: NITROGLYCERIN
     Indication: PRODUCT USED FOR UNKNOWN INDICATION
     Route: 065
  3. BISOPROLOL FUMARATE. [Suspect]
     Active Substance: BISOPROLOL FUMARATE
     Indication: ANGINA PECTORIS
     Dosage: 10 MILLIGRAM DAILY;
     Route: 065
     Dates: end: 201612

REACTIONS (17)
  - Condition aggravated [Unknown]
  - Drug hypersensitivity [Unknown]
  - Nausea [Unknown]
  - Allergy to metals [Unknown]
  - Stress [Unknown]
  - Insomnia [Unknown]
  - Wrong technique in product usage process [Unknown]
  - Feeling abnormal [Unknown]
  - Hyperphagia [Unknown]
  - Heart rate decreased [Unknown]
  - Blood pressure abnormal [Unknown]
  - Fatigue [Unknown]
  - Arrhythmia [Unknown]
  - Atrial fibrillation [Unknown]
  - Ventricular hypertrophy [Unknown]
  - Memory impairment [Unknown]
  - Nocturia [Unknown]
